FAERS Safety Report 13775464 (Version 1)
Quarter: 2017Q3

REPORT INFORMATION
  Report Type: Spontaneous
  Country: GB (occurrence: GB)
  Receive Date: 20170721
  Receipt Date: 20170721
  Transmission Date: 20171127
  Serious: Yes (Disabling, Other)
  Sender: FDA-Public Use
  Company Number: GB-TEVA-787108ACC

PATIENT
  Age: 83 Year
  Sex: Female

DRUGS (22)
  1. COLCHICINE. [Concomitant]
     Active Substance: COLCHICINE
     Dosage: 1000 MICROGRAM DAILY;
     Dates: start: 20170118
  2. E45 [Concomitant]
     Active Substance: LANOLIN\LIGHT MINERAL OIL\PARAFFIN
     Dosage: 4 DOSAGE FORMS DAILY;
     Dates: start: 20170606
  3. GLYCERYL TRINITRATE [Concomitant]
     Active Substance: NITROGLYCERIN
     Dosage: ASD
     Route: 060
     Dates: start: 20170201
  4. KOLANTICON [Concomitant]
     Dosage: AS NEEDED, THREE TIMES DAILY
     Dates: start: 20170118
  5. MOMETASONE [Concomitant]
     Active Substance: MOMETASONE
     Dosage: 100 MICROGRAM DAILY;
     Route: 045
     Dates: start: 20170328
  6. CANDESARTAN. [Concomitant]
     Active Substance: CANDESARTAN
     Dosage: 8 MILLIGRAM DAILY;
     Dates: start: 20170118
  7. BETAMETHASONE AND CALCIPOTRIOL [Concomitant]
     Dosage: 1 DOSAGE FORMS DAILY;
     Dates: start: 20170524
  8. ALLOPURINOL. [Concomitant]
     Active Substance: ALLOPURINOL
     Dosage: 300 MILLIGRAM DAILY;
     Dates: start: 20170118
  9. TILDIEM [Concomitant]
     Active Substance: DILTIAZEM HYDROCHLORIDE
     Dosage: 120 MILLIGRAM DAILY;
     Dates: start: 20170118
  10. IBUGEL [Concomitant]
     Active Substance: IBUPROFEN
  11. EURAX [Concomitant]
     Active Substance: CROTAMITON
     Dosage: ASD
     Dates: start: 20170509
  12. HIRUDOID [Concomitant]
     Active Substance: GLYCOSAMINOGLYCANS
     Dosage: ASD
     Dates: start: 20170328
  13. OTOMIZE [Concomitant]
     Active Substance: DEXAMETHASONE\NEOMYCIN SULFATE
     Dosage: 3 DOSAGE FORMS DAILY;
     Dates: start: 20170328
  14. CLOPIDOGREL [Concomitant]
     Active Substance: CLOPIDOGREL BISULFATE
     Dosage: 75 MILLIGRAM DAILY;
     Dates: start: 20170118
  15. FUROSEMIDE. [Concomitant]
     Active Substance: FUROSEMIDE
     Dosage: 80 MILLIGRAM DAILY;
     Dates: start: 20170330
  16. HYPROMELLOSE [Concomitant]
     Active Substance: HYPROMELLOSES
     Dosage: ONE TO TWO DROPS FOUR TIMES A DAY AS NEEDED
     Dates: start: 20170502
  17. IBUPROFEN. [Concomitant]
     Active Substance: IBUPROFEN
     Dosage: 3 DOSAGE FORMS DAILY;
     Route: 061
     Dates: start: 20170201
  18. LANSOPRAZOLE. [Suspect]
     Active Substance: LANSOPRAZOLE
     Dosage: 15 MILLIGRAM DAILY;
     Dates: start: 20170614, end: 20170628
  19. CARBOMER [Concomitant]
     Active Substance: CARBOMER
     Dosage: 1 DOSAGE FORMS DAILY;
     Dates: start: 20170502
  20. LEVOTHYROXINE. [Concomitant]
     Active Substance: LEVOTHYROXINE
     Dosage: 100 MICROGRAM DAILY;
     Dates: start: 20170201
  21. QUININE SULPHATE [Concomitant]
     Active Substance: QUININE SULFATE
     Dosage: 200 MILLIGRAM DAILY;
     Dates: start: 20170118
  22. SUMATRIPTAN. [Concomitant]
     Active Substance: SUMATRIPTAN
     Indication: MIGRAINE
     Dosage: 1 TABLET AT THE ONSET OF MIGRAINE ATTACK. CAN REPEAT DOSE AFTER 2 HOURS IF MIGRAINE RECURS.
     Dates: start: 20170502

REACTIONS (2)
  - Suicidal ideation [Recovering/Resolving]
  - Depression [Recovering/Resolving]

NARRATIVE: CASE EVENT DATE: 20170619
